FAERS Safety Report 15400120 (Version 1)
Quarter: 2018Q3

REPORT INFORMATION
  Report Type: Spontaneous
  Country: US (occurrence: US)
  Receive Date: 20180919
  Receipt Date: 20180919
  Transmission Date: 20181010
  Serious: No
  Sender: FDA-Public Use
  Company Number: US-BION-007068

PATIENT
  Age: 90 Year
  Sex: Female
  Weight: 83.91 kg

DRUGS (1)
  1. ZYRTEC [Suspect]
     Active Substance: CETIRIZINE HYDROCHLORIDE
     Indication: HYPERSENSITIVITY
     Route: 048
     Dates: start: 20180321

REACTIONS (2)
  - Product package associated injury [Recovering/Resolving]
  - Self-medication [Not Recovered/Not Resolved]

NARRATIVE: CASE EVENT DATE: 20180321
